FAERS Safety Report 9424201 (Version 1)
Quarter: 2013Q3

REPORT INFORMATION
  Report Type: Spontaneous
  Country: US (occurrence: US)
  Receive Date: 20130729
  Receipt Date: 20130729
  Transmission Date: 20140515
  Serious: Yes (Other)
  Sender: FDA-Public Use
  Company Number: US-ROCHE-1250927

PATIENT
  Age: 22 Year
  Sex: Male
  Weight: 97.61 kg

DRUGS (2)
  1. ACCUTANE [Suspect]
     Indication: ACNE
     Dosage: 40MG TO 80 MG
     Route: 048
     Dates: start: 200711, end: 200805
  2. CLARAVIS [Suspect]
     Indication: ACNE
     Route: 065
     Dates: start: 200711, end: 200805

REACTIONS (5)
  - Crohn^s disease [Unknown]
  - Inflammatory bowel disease [Unknown]
  - Perirectal abscess [Unknown]
  - Anal fistula [Unknown]
  - Dry skin [Unknown]
